FAERS Safety Report 8328461-6 (Version None)
Quarter: 2012Q2

REPORT INFORMATION
  Report Type: 
  Country: None (occurrence: None)
  Receive Date: 20120502
  Receipt Date: 20120502
  Transmission Date: 20120825
  Serious: Yes (Life-Threatening)
  Sender: FDA-Public Use
  Company Number: None

PATIENT
  Age: 48 Year
  Sex: Female
  Weight: 90.718 kg

DRUGS (1)
  1. SAVELLA [Suspect]
     Indication: FIBROMYALGIA
     Dosage: |DOSAGETEXT: 25 MG||STRENGTH: 25MG||FREQ: 2 X DAY||ROUTE: ORAL|
     Route: 048
     Dates: start: 20110905, end: 20120430

REACTIONS (1)
  - BLOOD PRESSURE INCREASED [None]
